FAERS Safety Report 20911533 (Version 1)
Quarter: 2022Q2

REPORT INFORMATION
  Report Type: Spontaneous
  Country: US (occurrence: US)
  Receive Date: 20220603
  Receipt Date: 20220603
  Transmission Date: 20220721
  Serious: No
  Sender: FDA-Public Use
  Company Number: US-RECORDATI-2022001239

PATIENT

DRUGS (8)
  1. ISTURISA [Suspect]
     Active Substance: OSILODROSTAT PHOSPHATE
     Indication: Pituitary-dependent Cushing^s syndrome
     Dosage: 2 MILLIGRAM, BID
     Route: 048
     Dates: start: 20220303
  2. DEPLIN [CALCIUM LEVOMEFOLATE] [Concomitant]
     Indication: Vitamin supplementation
     Dosage: 15 CAPSULES  QD
     Route: 048
     Dates: start: 20220314
  3. ESTRADIOL [Concomitant]
     Active Substance: ESTRADIOL
     Indication: Hormone replacement therapy
     Dosage: TWICE WEEKLY
     Route: 062
     Dates: start: 20220102
  4. NP THYROID [Concomitant]
     Active Substance: LEVOTHYROXINE\LIOTHYRONINE
     Indication: Autoimmune thyroiditis
     Dosage: 135 MICROGRAM, QD
     Dates: start: 20220314
  5. PROGESTERONE [Concomitant]
     Active Substance: PROGESTERONE
     Indication: Product used for unknown indication
     Dosage: 150 MILLIGRAM, QD EVERY 2 WEEKS OF THE MONTH
     Dates: start: 20220102
  6. VITAMIN D3 [Concomitant]
     Active Substance: CHOLECALCIFEROL
     Indication: Hypovitaminosis
     Dosage: UNK
     Dates: start: 20210302
  7. OXITRIPTAN [Concomitant]
     Active Substance: OXITRIPTAN
     Indication: Insomnia
     Dosage: 500 MILLIGRAM
     Dates: start: 20210302
  8. GABAPENTIN [Concomitant]
     Active Substance: GABAPENTIN
     Indication: Depression
     Dosage: UNK
     Dates: end: 20220314

REACTIONS (1)
  - Fatigue [Not Recovered/Not Resolved]

NARRATIVE: CASE EVENT DATE: 20220301
